FAERS Safety Report 7197825-9 (Version None)
Quarter: 2010Q4

REPORT INFORMATION
  Report Type: 
  Country: None (occurrence: None)
  Receive Date: 20101227
  Receipt Date: 20101220
  Transmission Date: 20110411
  Serious: Yes (Hospitalization)
  Sender: FDA-Public Use
  Company Number: US-ROCHE-460865

PATIENT
  Sex: Male
  Weight: 68 kg

DRUGS (2)
  1. BEVACIZUMAB [Suspect]
     Indication: NON-SMALL CELL LUNG CANCER
     Route: 042
     Dates: start: 20060727
  2. ERLOTINIB [Suspect]
     Indication: NON-SMALL CELL LUNG CANCER
     Route: 048
     Dates: start: 20060727

REACTIONS (3)
  - ATRIAL FIBRILLATION [None]
  - GASTRITIS EROSIVE [None]
  - UPPER GASTROINTESTINAL HAEMORRHAGE [None]
